FAERS Safety Report 10615674 (Version 1)
Quarter: 2014Q4

REPORT INFORMATION
  Report Type: Spontaneous
  Country: US (occurrence: None)
  Receive Date: 20141125
  Receipt Date: 20141125
  Transmission Date: 20150529
  Serious: Yes (Hospitalization)
  Sender: FDA-Public Use
  Company Number: None

PATIENT
  Age: 88 Year
  Sex: Male
  Weight: 68.2 kg

DRUGS (1)
  1. SERTRALINE [Suspect]
     Active Substance: SERTRALINE HYDROCHLORIDE
     Route: 048
     Dates: start: 20140603, end: 20140703

REACTIONS (5)
  - Asthenia [None]
  - Fatigue [None]
  - Hyponatraemia [None]
  - Lethargy [None]
  - Balance disorder [None]

NARRATIVE: CASE EVENT DATE: 20140703
